FAERS Safety Report 9464600 (Version 3)
Quarter: 2013Q3

REPORT INFORMATION
  Report Type: Spontaneous
  Country: US (occurrence: US)
  Receive Date: 20130819
  Receipt Date: 20130823
  Transmission Date: 20140515
  Serious: Yes (Other)
  Sender: FDA-Public Use
  Company Number: US-PFIZER INC-2012141621

PATIENT
  Age: 50 Year
  Sex: Male

DRUGS (3)
  1. EFFEXOR XR [Suspect]
     Dosage: 150 MG, ONCE DAILY IN THE EVENING
  2. PROTONIX [Suspect]
     Dosage: 40 MG, ONCE DAILY IN THE MORNING
  3. ABILIFY [Concomitant]
     Dosage: UNK

REACTIONS (1)
  - Myocardial infarction [Unknown]
